FAERS Safety Report 21706971 (Version 2)
Quarter: 2023Q1

REPORT INFORMATION
  Report Type: Spontaneous
  Country: US (occurrence: US)
  Receive Date: 20221209
  Receipt Date: 20230116
  Transmission Date: 20230418
  Serious: Yes (Hospitalization, Other)
  Sender: FDA-Public Use
  Company Number: US-PFIZER INC-202201348989

PATIENT
  Age: 71 Year
  Sex: Female

DRUGS (2)
  1. SIROLIMUS [Suspect]
     Active Substance: SIROLIMUS
     Indication: Heart transplant
     Dosage: UNK
  2. SIROLIMUS [Suspect]
     Active Substance: SIROLIMUS
     Indication: Cardiac failure congestive

REACTIONS (4)
  - Near death experience [Recovered/Resolved]
  - Transplant rejection [Recovered/Resolved]
  - Visual impairment [Not Recovered/Not Resolved]
  - Off label use [Unknown]
